FAERS Safety Report 16898880 (Version 1)
Quarter: 2019Q4

REPORT INFORMATION
  Report Type: Spontaneous
  Country: US (occurrence: US)
  Receive Date: 20191009
  Receipt Date: 20191009
  Transmission Date: 20200122
  Serious: No
  Sender: FDA-Public Use
  Company Number: US-PFIZER INC-2019434111

PATIENT
  Age: 74 Year
  Sex: Male

DRUGS (6)
  1. NAPROXEN. [Suspect]
     Active Substance: NAPROXEN
     Dosage: UNK
  2. BACLOFEN. [Suspect]
     Active Substance: BACLOFEN
     Dosage: UNK
  3. CYMBALTA [Suspect]
     Active Substance: DULOXETINE HYDROCHLORIDE
     Dosage: UNK
  4. GABAPENTIN. [Suspect]
     Active Substance: GABAPENTIN
     Dosage: UNK
  5. DEPAKOTE [Suspect]
     Active Substance: DIVALPROEX SODIUM
     Dosage: UNK
  6. TEGRETOL [Suspect]
     Active Substance: CARBAMAZEPINE
     Dosage: UNK

REACTIONS (1)
  - Drug hypersensitivity [Unknown]
